FAERS Safety Report 9418941 (Version 1)
Quarter: 2013Q3

REPORT INFORMATION
  Report Type: Report from Study
  Country: GB (occurrence: GB)
  Receive Date: 20130725
  Receipt Date: 20130725
  Transmission Date: 20140515
  Serious: Yes (Hospitalization)
  Sender: FDA-Public Use
  Company Number: GB-JNJFOC-20130302290

PATIENT
  Age: 63 Year
  Sex: Female
  Weight: 83 kg

DRUGS (15)
  1. USTEKINUMAB [Suspect]
     Indication: PSORIASIS
     Route: 058
     Dates: start: 20110613
  2. 50/50 CREAM [Concomitant]
     Dates: start: 20030901
  3. METFORMIN [Concomitant]
     Dates: start: 20110110
  4. GLICLAZIDE [Concomitant]
     Dates: start: 20110110
  5. DERMOVATE [Concomitant]
     Dates: start: 20110208
  6. ONDANSETRON [Concomitant]
     Dates: start: 20110224
  7. MEBEVERINE [Concomitant]
     Dates: start: 20110203
  8. FUMARIC ACID [Concomitant]
     Dates: start: 20110201
  9. DOXYCYCLINE [Concomitant]
     Dates: start: 20121106, end: 20121213
  10. ASPIRIN [Concomitant]
     Dates: start: 20100625
  11. LOSEC [Concomitant]
     Dates: start: 20070816
  12. MULTIVITAMINS [Concomitant]
     Dates: start: 20090309
  13. STRONTIUM RANELATE [Concomitant]
     Dates: start: 20071113
  14. TILDIEM [Concomitant]
     Dates: start: 20100827
  15. VENTOLIN [Concomitant]
     Dates: start: 19990823

REACTIONS (2)
  - Chronic obstructive pulmonary disease [Recovered/Resolved]
  - Respiratory tract infection [Recovered/Resolved]
